FAERS Safety Report 7946811-7 (Version None)
Quarter: 2011Q4

REPORT INFORMATION
  Report Type: 
  Country: None (occurrence: None)
  Receive Date: 20111125
  Receipt Date: 20111115
  Transmission Date: 20120403
  Serious: Yes (Life-Threatening, Hospitalization, Other)
  Sender: FDA-Public Use
  Company Number: DAV-AE-11-018

PATIENT
  Age: 77 Year
  Sex: Male

DRUGS (2)
  1. AMOXICILLIN [Suspect]
     Indication: GINGIVITIS
     Dosage: 500 MG.DAILY/ ORAL
     Route: 048
  2. AMOXICILLIN [Suspect]
     Indication: TOOTH DISORDER
     Dosage: 500 MG.DAILY/ ORAL
     Route: 048

REACTIONS (2)
  - ENCEPHALITIS [None]
  - MENINGITIS ASEPTIC [None]
